FAERS Safety Report 5695495-X (Version None)
Quarter: 2008Q2

REPORT INFORMATION
  Report Type: 
  Country: None (occurrence: None)
  Receive Date: 20080407
  Receipt Date: 20080403
  Transmission Date: 20081010
  Serious: Yes (Hospitalization, Other)
  Sender: FDA-Public Use
  Company Number: AU-SP-2007-04141

PATIENT
  Age: 70 Year
  Sex: Male

DRUGS (5)
  1. IMMUCYST [Suspect]
     Indication: TRANSITIONAL CELL CARCINOMA
     Route: 043
     Dates: start: 20060424, end: 20060424
  2. IMMUCYST [Suspect]
     Route: 043
     Dates: start: 20060424, end: 20060424
  3. EPROSARTAN [Concomitant]
     Route: 048
     Dates: end: 20060426
  4. AROPAX (PAROXETINE HYDROCLORIDE) [Concomitant]
     Route: 048
     Dates: end: 20060426
  5. LIPITOR [Concomitant]
     Route: 048
     Dates: end: 20060426

REACTIONS (10)
  - ACUTE RESPIRATORY DISTRESS SYNDROME [None]
  - DISSEMINATED INTRAVASCULAR COAGULATION [None]
  - HYPERSENSITIVITY [None]
  - HYPOXIA [None]
  - JAUNDICE CHOLESTATIC [None]
  - LIVER FUNCTION TEST ABNORMAL [None]
  - NAUSEA [None]
  - PYREXIA [None]
  - RENAL FAILURE ACUTE [None]
  - SEPSIS SYNDROME [None]
